FAERS Safety Report 15931314 (Version 2)
Quarter: 2019Q2

REPORT INFORMATION
  Report Type: Spontaneous
  Country: US (occurrence: US)
  Receive Date: 20190207
  Receipt Date: 20190419
  Transmission Date: 20190711
  Serious: Yes (Other)
  Sender: FDA-Public Use
  Company Number: US-ASTRAZENECA-2018SF00143

PATIENT
  Age: 20256 Day

DRUGS (22)
  1. PRILOSEC OTC [Suspect]
     Active Substance: OMEPRAZOLE MAGNESIUM
     Route: 048
     Dates: start: 200501, end: 201811
  2. PRILOSEC OTC [Suspect]
     Active Substance: OMEPRAZOLE MAGNESIUM
     Route: 048
     Dates: start: 2005, end: 2018
  3. DUONEB [Concomitant]
     Active Substance: ALBUTEROL SULFATE\IPRATROPIUM BROMIDE
  4. PRILOSEC [Suspect]
     Active Substance: OMEPRAZOLE MAGNESIUM
     Route: 048
     Dates: start: 200501, end: 201811
  5. SINGULAIR [Concomitant]
     Active Substance: MONTELUKAST SODIUM
  6. PEPCID [Concomitant]
     Active Substance: FAMOTIDINE
  7. NEURONTIN [Concomitant]
     Active Substance: GABAPENTIN
  8. DEXILANT [Suspect]
     Active Substance: DEXLANSOPRAZOLE
     Route: 065
     Dates: start: 2005, end: 2018
  9. REMERON [Concomitant]
     Active Substance: MIRTAZAPINE
  10. SENOKOT [Concomitant]
     Active Substance: SENNOSIDES
  11. ADVAIR HFA [Concomitant]
     Active Substance: FLUTICASONE PROPIONATE\SALMETEROL XINAFOATE
  12. OXYCONTIN [Concomitant]
     Active Substance: OXYCODONE HYDROCHLORIDE
  13. ZOLOFT [Concomitant]
     Active Substance: SERTRALINE HYDROCHLORIDE
  14. VANCOMYCIN [Concomitant]
     Active Substance: VANCOMYCIN
  15. CATAPRES [Concomitant]
     Active Substance: CLONIDINE HYDROCHLORIDE
  16. DILANTIN [Concomitant]
     Active Substance: PHENYTOIN
  17. PREDNISONE. [Concomitant]
     Active Substance: PREDNISONE
  18. PROCARDIA XL [Concomitant]
     Active Substance: NIFEDIPINE
  19. PRILOSEC [Suspect]
     Active Substance: OMEPRAZOLE MAGNESIUM
     Dosage: GENERIC
     Route: 048
     Dates: start: 2005, end: 2018
  20. DILAUDID [Concomitant]
     Active Substance: HYDROMORPHONE HYDROCHLORIDE
  21. AZACTAM [Concomitant]
     Active Substance: AZTREONAM
  22. PRILOSEC [Suspect]
     Active Substance: OMEPRAZOLE MAGNESIUM
     Route: 048
     Dates: start: 2005, end: 2018

REACTIONS (2)
  - Acute kidney injury [Unknown]
  - End stage renal disease [Not Recovered/Not Resolved]

NARRATIVE: CASE EVENT DATE: 20140123
